FAERS Safety Report 17609032 (Version 2)
Quarter: 2025Q2

REPORT INFORMATION
  Report Type: Spontaneous
  Country: US (occurrence: US)
  Receive Date: 20200401
  Receipt Date: 20250621
  Transmission Date: 20250717
  Serious: Yes (Hospitalization, Other)
  Sender: AUROBINDO
  Company Number: US-MLMSERVICE-20200319-2216142-1

PATIENT
  Age: 70 Year
  Sex: Female

DRUGS (7)
  1. RISPERIDONE [Suspect]
     Active Substance: RISPERIDONE
     Indication: Schizoaffective disorder bipolar type
     Dosage: 3 MILLIGRAM, ONCE A DAY (AT NIGHT )
     Route: 065
  2. RISPERIDONE [Suspect]
     Active Substance: RISPERIDONE
     Dosage: 2 MILLIGRAM, TWO TIMES A DAY (DECREASED TO RISPERIDONE 2MG TWICE DAILY )
     Route: 065
  3. RISPERIDONE [Suspect]
     Active Substance: RISPERIDONE
     Dosage: 5 MILLIGRAM, ONCE A DAY (IN THE MORNING)
     Route: 065
  4. HALDOL [Suspect]
     Active Substance: HALOPERIDOL
     Indication: Schizoaffective disorder bipolar type
     Dosage: 1 MILLIGRAM, ONCE A DAY (AT NIGHT)
     Route: 065
  5. HALDOL [Suspect]
     Active Substance: HALOPERIDOL
     Dosage: 2 MILLIGRAM, ONCE A DAY (IN THE MORNING)
     Route: 065
  6. GABAPENTIN [Concomitant]
     Active Substance: GABAPENTIN
     Indication: Product used for unknown indication
     Dosage: 200 MILLIGRAM, TWO TIMES A DAY
     Route: 065
  7. GABAPENTIN [Concomitant]
     Active Substance: GABAPENTIN
     Dosage: 300 MILLIGRAM, ONCE A DAY
     Route: 065

REACTIONS (5)
  - Hypersexuality [Recovering/Resolving]
  - Abnormal behaviour [Recovering/Resolving]
  - Hypomania [Recovering/Resolving]
  - Irritability [Recovering/Resolving]
  - Paranoia [Recovering/Resolving]
